FAERS Safety Report 14152598 (Version 1)
Quarter: 2017Q4

REPORT INFORMATION
  Report Type: Spontaneous
  Country: US (occurrence: US)
  Receive Date: 20171102
  Receipt Date: 20171102
  Transmission Date: 20180321
  Serious: Yes (Hospitalization)
  Sender: FDA-Public Use
  Company Number: None

PATIENT
  Age: 53 Year
  Sex: Female
  Weight: 68.9 kg

DRUGS (2)
  1. VOTRIENT [Suspect]
     Active Substance: PAZOPANIB HYDROCHLORIDE
     Indication: METASTATIC RENAL CELL CARCINOMA
     Route: 048
     Dates: start: 20170912, end: 20171011
  2. ACETAMINOPHEN. [Concomitant]
     Active Substance: ACETAMINOPHEN

REACTIONS (7)
  - Transaminases increased [None]
  - Headache [None]
  - Blood pressure increased [None]
  - Faeces discoloured [None]
  - Hyperbilirubinaemia [None]
  - Yellow skin [None]
  - Hepatic failure [None]

NARRATIVE: CASE EVENT DATE: 20171018
